FAERS Safety Report 10412804 (Version 1)
Quarter: 2014Q3

REPORT INFORMATION
  Report Type: Spontaneous
  Country: US (occurrence: None)
  Receive Date: 20140825
  Receipt Date: 20140825
  Transmission Date: 20150326
  Serious: Yes (Hospitalization, Other)
  Sender: FDA-Public Use
  Company Number: COL_17279_2014

PATIENT
  Sex: Male

DRUGS (6)
  1. CHEMOTHERAPEUTICS (UNKNOWN) [Concomitant]
  2. COLGATE TOTAL ADVANCED CLEAN [Suspect]
     Active Substance: SODIUM FLUORIDE\TRICLOSAN
     Indication: PRODUCT USED FOR UNKNOWN INDICATION
     Dosage: COVERS THE HEAD OF HIS TOOTHBRUSH/2-3 TIMES A DAY ORAL
     Route: 048
     Dates: end: 20140813
  3. LIPID MODIFYING AGENTS (UNKNOWN) [Concomitant]
  4. UNSPECIFIED MEDICATION [Concomitant]
     Active Substance: UNSPECIFIED INGREDIENT
  5. GAMMA GLOBULIN (UNKNOWN) [Concomitant]
  6. ANTIHYPERTENSIVES (UNKNOWN) [Concomitant]
     Active Substance: UNSPECIFIED INGREDIENT

REACTIONS (8)
  - Cough [None]
  - Nervous system disorder [None]
  - Condition aggravated [None]
  - Chronic lymphocytic leukaemia [None]
  - Lung disorder [None]
  - Influenza like illness [None]
  - Weight decreased [None]
  - Decreased appetite [None]
